FAERS Safety Report 21955518 (Version 1)
Quarter: 2023Q1

REPORT INFORMATION
  Report Type: Spontaneous
  Country: MX (occurrence: MX)
  Receive Date: 20230206
  Receipt Date: 20230206
  Transmission Date: 20230418
  Serious: Yes (Hospitalization, Congenital Anomaly, Other)
  Sender: FDA-Public Use
  Company Number: MX-SUN PHARMACEUTICAL INDUSTRIES LTD-2023R1-375930

PATIENT
  Age: 36 Year
  Sex: Female

DRUGS (2)
  1. FOLIC ACID [Suspect]
     Active Substance: FOLIC ACID
     Indication: Prenatal care
     Dosage: UNK
     Route: 065
  2. IRON SUCROSE [Suspect]
     Active Substance: IRON SUCROSE
     Indication: Prenatal care
     Dosage: UNK
     Route: 065

REACTIONS (4)
  - Craniorachischisis [Unknown]
  - Therapy non-responder [Unknown]
  - Exposure during pregnancy [Unknown]
  - Abortion induced [Unknown]
